FAERS Safety Report 7827132-X (Version None)
Quarter: 2011Q4

REPORT INFORMATION
  Report Type: 
  Country: None (occurrence: None)
  Receive Date: 20111018
  Receipt Date: 20111003
  Transmission Date: 20120403
  Serious: Yes (Death)
  Sender: FDA-Public Use
  Company Number: 1000024578

PATIENT
  Age: 51 Year
  Sex: Female

DRUGS (2)
  1. ELAVIL [Suspect]
     Dosage: 150 MG (150 MG, 3 IN 1 D)
  2. ESCITALOPRAM (ESCITALOPRAM OXALATE) (TABLETS) [Suspect]
     Dosage: 10 MG (10 MG, 1 IN 1 D)

REACTIONS (2)
  - ANTIDEPRESSANT DRUG LEVEL ABOVE THERAPEUTIC [None]
  - TOXICITY TO VARIOUS AGENTS [None]
